FAERS Safety Report 6960857-7 (Version None)
Quarter: 2010Q3

REPORT INFORMATION
  Report Type: 
  Country: None (occurrence: None)
  Receive Date: 20100901
  Receipt Date: 20100825
  Transmission Date: 20110219
  Serious: Yes (Life-Threatening, Hospitalization, Other)
  Sender: FDA-Public Use
  Company Number: DE-ROCHE-724226

PATIENT
  Sex: Male
  Weight: 63 kg

DRUGS (2)
  1. XELODA [Suspect]
     Dosage: 3300 MG/DAY FOR THE FIRST 14 DAYS.
     Route: 048
     Dates: start: 20100318, end: 20100323
  2. OXALIPLATIN [Concomitant]
     Dosage: 70 MG ON DAY 1 AND DAY 8. FIRST ADMINISTRATION WAS ON 18 MAR 2010.
     Route: 042
     Dates: start: 20100318

REACTIONS (2)
  - ILEUS [None]
  - MALIGNANT NEOPLASM PROGRESSION [None]
